FAERS Safety Report 17519934 (Version 1)
Quarter: 2020Q1

REPORT INFORMATION
  Report Type: Spontaneous
  Country: US (occurrence: US)
  Receive Date: 20200229
  Receipt Date: 20200229
  Transmission Date: 20200409
  Serious: No
  Sender: FDA-Public Use
  Company Number: None

PATIENT
  Age: 47 Year
  Sex: Male

DRUGS (1)
  1. ENBREL [Suspect]
     Active Substance: ETANERCEPT
     Route: 058
     Dates: start: 20191211

REACTIONS (5)
  - Chills [None]
  - Therapy cessation [None]
  - Night sweats [None]
  - Muscle spasms [None]
  - Ill-defined disorder [None]

NARRATIVE: CASE EVENT DATE: 20200229
